FAERS Safety Report 8848972 (Version 2)
Quarter: 2012Q4

REPORT INFORMATION
  Report Type: 
  Country: FR (occurrence: FR)
  Receive Date: 20121019
  Receipt Date: 20121217
  Transmission Date: 20130627
  Serious: Yes (Hospitalization, Other)
  Sender: FDA-Public Use
  Company Number: FR-ELI_LILLY_AND_COMPANY-FR201209003362

PATIENT
  Age: 34 Year
  Sex: Male

DRUGS (3)
  1. ZYPADHERA [Suspect]
     Dosage: 300 mg, 2/M
     Dates: start: 20120529
  2. ZYPADHERA [Suspect]
     Dosage: 405 mg, monthly (1/M)
     Route: 030
     Dates: start: 20120620
  3. ZYPADHERA [Suspect]
     Dosage: UNK, unknown

REACTIONS (10)
  - Atrial fibrillation [Recovered/Resolved]
  - Cerebral ventricle dilatation [Recovered/Resolved]
  - Loss of consciousness [Recovered/Resolved]
  - Muscle rigidity [Recovered/Resolved]
  - Eye movement disorder [Recovered/Resolved]
  - Heart rate irregular [Recovered/Resolved]
  - Myoclonus [Recovered/Resolved]
  - Fall [Recovered/Resolved]
  - Dyskinesia [Recovered/Resolved]
  - Tremor [Recovered/Resolved]
